FAERS Safety Report 20079037 (Version 1)
Quarter: 2021Q4

REPORT INFORMATION
  Report Type: Spontaneous
  Country: US (occurrence: US)
  Receive Date: 20211117
  Receipt Date: 20211117
  Transmission Date: 20220304
  Serious: Yes (Other)
  Sender: FDA-Public Use
  Company Number: US-ALLERGAN-2123337US

PATIENT
  Age: 78 Year
  Sex: Female

DRUGS (8)
  1. COMBIGAN [Suspect]
     Active Substance: BRIMONIDINE TARTRATE\TIMOLOL MALEATE
     Indication: Glaucoma
     Dosage: ONE DROP PER EYE TID
     Route: 047
     Dates: start: 2021
  2. COMBIGAN [Suspect]
     Active Substance: BRIMONIDINE TARTRATE\TIMOLOL MALEATE
     Dosage: ONE DROP PER EYE BID
     Route: 047
     Dates: start: 2017, end: 202104
  3. DIAMOX SEQUELS [Concomitant]
     Active Substance: ACETAZOLAMIDE
     Indication: Intraocular pressure increased
     Dosage: UNK
     Dates: start: 20210517
  4. ROCKLATAN [Concomitant]
     Active Substance: LATANOPROST\NETARSUDIL MESYLATE
     Indication: Intraocular pressure increased
     Dosage: UNK
     Dates: start: 20210518
  5. TRAMADOL [Concomitant]
     Active Substance: TRAMADOL
     Indication: Arthritis
  6. MOTRIN [Concomitant]
     Active Substance: IBUPROFEN
     Indication: Arthritis
  7. LIPITOR [Concomitant]
     Active Substance: ATORVASTATIN CALCIUM
     Indication: Carotid artery stenosis
  8. LATANOPROST [Concomitant]
     Active Substance: LATANOPROST
     Indication: Glaucoma
     Dosage: UNK
     Dates: start: 2017, end: 20210518

REACTIONS (8)
  - Hypotension [Not Recovered/Not Resolved]
  - Fall [Recovered/Resolved]
  - Dysstasia [Not Recovered/Not Resolved]
  - Inappropriate schedule of product administration [Unknown]
  - Dizziness [Not Recovered/Not Resolved]
  - Fatigue [Not Recovered/Not Resolved]
  - Somnolence [Recovered/Resolved]
  - Product packaging quantity issue [Unknown]

NARRATIVE: CASE EVENT DATE: 20210101
